FAERS Safety Report 10841180 (Version 1)
Quarter: 2015Q1

REPORT INFORMATION
  Report Type: Spontaneous
  Country: ES (occurrence: None)
  Receive Date: 20150218
  Receipt Date: 20150218
  Transmission Date: 20150721
  Serious: Yes (Other)
  Sender: FDA-Public Use
  Company Number: FK201500810

PATIENT
  Age: 6 Year
  Sex: Male

DRUGS (7)
  1. CICLOSPORIN [Concomitant]
     Active Substance: CYCLOSPORINE
  2. RITUXIMAB (RITUXIMAB) [Suspect]
     Active Substance: RITUXIMAB
     Indication: THROMBOCYTOPENIA
  3. CORTICOSTEROIDS [Suspect]
     Active Substance: CORTICOSTEROID NOS
     Indication: THROMBOCYTOPENIA
  4. ANTI-THYMOCYTE GLOBULIN [Suspect]
     Active Substance: THYMOCYTE IMMUNE GLOBULIN NOS
     Indication: BONE MARROW CONDITIONING REGIMEN
  5. MYCOPHENOLATE (MYCOPHENOLATE MOFETIL) (500 MILLIGRAM, UNKNOWN) [Concomitant]
     Active Substance: MYCOPHENOLIC ACID
  6. METHYLPREDNISOLONE. [Concomitant]
     Active Substance: METHYLPREDNISOLONE
  7. GANCICLOVIR. [Suspect]
     Active Substance: GANCICLOVIR
     Indication: HUMAN HERPESVIRUS 6 INFECTION

REACTIONS (11)
  - Post procedural complication [None]
  - Hyponatraemia [None]
  - Drop attacks [None]
  - Encephalitis [None]
  - Graft versus host disease [None]
  - Tonic convulsion [None]
  - General physical health deterioration [None]
  - Immune thrombocytopenic purpura [None]
  - Epilepsy [None]
  - Petit mal epilepsy [None]
  - Human herpesvirus 6 infection [None]

NARRATIVE: CASE EVENT DATE: 2010
